FAERS Safety Report 18020530 (Version 3)
Quarter: 2022Q3

REPORT INFORMATION
  Report Type: Report from Study
  Country: AR (occurrence: AR)
  Receive Date: 20200714
  Receipt Date: 20220729
  Transmission Date: 20221027
  Serious: Yes (Death, Other)
  Sender: FDA-Public Use
  Company Number: AR-KARYOPHARM THERAPEUTICS, INC.-2020KPT000475

PATIENT
  Age: 63 Year
  Sex: Female

DRUGS (4)
  1. SELINEXOR [Suspect]
     Active Substance: SELINEXOR
     Indication: Plasma cell myeloma
     Dosage: 100 MG, WEEKLY
     Route: 048
     Dates: start: 20191126, end: 201912
  2. SELINEXOR [Suspect]
     Active Substance: SELINEXOR
     Dosage: 80 MG, WEEKLY
     Route: 048
     Dates: start: 201912, end: 20200201
  3. BORTEZOMIB [Concomitant]
     Active Substance: BORTEZOMIB
     Indication: Plasma cell myeloma refractory
     Dosage: 1.3 MG/M2, WEEKLY ON DAYS 1, 8, 15, 22
     Dates: start: 20191126, end: 20200201
  4. DEXAMETHASONE [Concomitant]
     Active Substance: DEXAMETHASONE
     Indication: Plasma cell myeloma refractory
     Dosage: 20 MG, 2X/WEEK ON DAYS 1, 2, 8, 9, 15, 16, 22,23, 29, AND 30.
     Dates: start: 20191126, end: 20200201

REACTIONS (6)
  - Acute respiratory distress syndrome [Fatal]
  - Pulmonary haemorrhage [Unknown]
  - Rhinovirus infection [Unknown]
  - Thrombocytopenia [Unknown]
  - Nausea [Unknown]
  - Fatigue [Unknown]

NARRATIVE: CASE EVENT DATE: 20191201
